FAERS Safety Report 13289284 (Version 1)
Quarter: 2017Q1

REPORT INFORMATION
  Report Type: Spontaneous
  Country: JP (occurrence: JP)
  Receive Date: 20170303
  Receipt Date: 20170303
  Transmission Date: 20170428
  Serious: Yes (Hospitalization, Other)
  Sender: FDA-Public Use
  Company Number: JP-BRISTOL-MYERS SQUIBB COMPANY-BMS-2017-014929

PATIENT
  Age: 67 Year
  Sex: Male

DRUGS (2)
  1. SITAGLIPTIN PHOSPHATE MONOHYDRATE [Concomitant]
     Active Substance: SITAGLIPTIN PHOSPHATE
     Indication: DIABETES MELLITUS
     Dosage: 50 MG, QD
     Route: 048
  2. METGLUCO [Suspect]
     Active Substance: METFORMIN HYDROCHLORIDE
     Indication: DIABETES MELLITUS
     Dosage: 1250 MG, QD
     Route: 048

REACTIONS (11)
  - Dialysis [Unknown]
  - Dehydration [Unknown]
  - Dyspnoea [Unknown]
  - Shock [Recovered/Resolved]
  - Metabolic acidosis [Unknown]
  - Blood urea increased [Unknown]
  - Malaise [Unknown]
  - Lactic acidosis [Unknown]
  - Acute kidney injury [Recovered/Resolved]
  - Blood creatinine increased [Unknown]
  - Bradycardia [Recovered/Resolved]
